FAERS Safety Report 7565806-9 (Version None)
Quarter: 2011Q2

REPORT INFORMATION
  Report Type: 
  Country: None (occurrence: None)
  Receive Date: 20110623
  Receipt Date: 20110617
  Transmission Date: 20111010
  Serious: No
  Sender: FDA-Public Use
  Company Number: US-PFIZER INC-2011135497

PATIENT
  Sex: Male
  Weight: 81.6 kg

DRUGS (11)
  1. SUTENT [Suspect]
     Dosage: 25 MG, 1X/DAY
     Route: 048
  2. CENTRUM SILVER [Concomitant]
  3. ENALAPRIL [Concomitant]
     Dosage: 2.5 MG, UNK
  4. METOPROLOL [Concomitant]
     Dosage: 50 MG, UNK
  5. MILK OF MAGNESIA TAB [Concomitant]
  6. CRESTOR [Concomitant]
     Dosage: 10 MG, UNK
  7. OXYCODONE [Concomitant]
     Dosage: 15 MG, UNK
  8. ONDANSETRON [Concomitant]
     Dosage: 8 MG, UNK
  9. TERAZOSIN [Concomitant]
     Dosage: 1 MG, UNK
  10. GAS RELIEF [Concomitant]
     Dosage: 125 MG, UNK
  11. ASPIRIN ADLT [Concomitant]
     Dosage: 81 MG, UNK

REACTIONS (3)
  - CHILLS [None]
  - SKIN LESION [None]
  - PYREXIA [None]
